FAERS Safety Report 14157203 (Version 1)
Quarter: 2017Q4

REPORT INFORMATION
  Report Type: Spontaneous
  Country: TH (occurrence: TH)
  Receive Date: 20171103
  Receipt Date: 20171103
  Transmission Date: 20180321
  Serious: Yes (Death, Other)
  Sender: FDA-Public Use
  Company Number: TH-MYLANLABS-2017M1068743

PATIENT
  Age: 31 Year
  Sex: Male
  Weight: 94 kg

DRUGS (1)
  1. PROPRANOLOL [Suspect]
     Active Substance: PROPRANOLOL HYDROCHLORIDE
     Indication: PRODUCT USED FOR UNKNOWN INDICATION
     Dosage: 15 PACKETS EACH CONTAINING 10 TABLETS OF PROPRANOLOL 40MG; ALLEGED TO HAVE CONSUMED 6G PROPRANOLOL
     Route: 048

REACTIONS (15)
  - Cardiac arrest [Fatal]
  - Oral pigmentation [Unknown]
  - Increased bronchial secretion [Unknown]
  - Overdose [Fatal]
  - Cerebral ventricle dilatation [Unknown]
  - Cardiomegaly [Unknown]
  - Mucosal pigmentation [Unknown]
  - Toxicity to various agents [Fatal]
  - Completed suicide [Fatal]
  - Cyanosis [Unknown]
  - Pulmonary oedema [Unknown]
  - Poisoning deliberate [Fatal]
  - Tongue pigmentation [Unknown]
  - Pulmonary congestion [Unknown]
  - Cerebral congestion [Unknown]
